FAERS Safety Report 5936811-0 (Version None)
Quarter: 2008Q4

REPORT INFORMATION
  Report Type: 
  Country: None (occurrence: None)
  Receive Date: 20081029
  Receipt Date: 20081015
  Transmission Date: 20090506
  Serious: Yes (Hospitalization)
  Sender: FDA-Public Use
  Company Number: 230719K08USA

PATIENT
  Age: 4 Year
  Sex: Male

DRUGS (2)
  1. REBIF [Suspect]
     Indication: OFF LABEL USE
     Dosage: 22 MCG, 2 IN 1 WEEKS, SUBCUTANEOUS; 22 MCG, 2 IN 1 WEEKS, SUBCUTANEOUS; 22 MCG, 3 IN 1 WEEKS, SUBCUT
     Route: 058
     Dates: start: 20080805, end: 20081001
  2. REBIF [Suspect]
     Indication: OFF LABEL USE
     Dosage: 22 MCG, 2 IN 1 WEEKS, SUBCUTANEOUS; 22 MCG, 2 IN 1 WEEKS, SUBCUTANEOUS; 22 MCG, 3 IN 1 WEEKS, SUBCUT
     Route: 058
     Dates: start: 20081001

REACTIONS (3)
  - MONOPLEGIA [None]
  - OFF LABEL USE [None]
  - PARALYSIS FLACCID [None]
